FAERS Safety Report 11247840 (Version 1)
Quarter: 2015Q2

REPORT INFORMATION
  Report Type: Spontaneous
  Country: US (occurrence: None)
  Receive Date: 20150617
  Receipt Date: 20150617
  Transmission Date: 20150821
  Serious: No
  Sender: FDA-Public Use
  Company Number: 2014TASUS000481

PATIENT
  Age: 60 Year
  Sex: Female
  Weight: 81.6 kg

DRUGS (3)
  1. HETLIOZ [Suspect]
     Active Substance: TASIMELTEON
     Indication: HALLUCINATION
     Route: 048
     Dates: start: 20140814, end: 20140821
  2. ENALAPRIL [Concomitant]
     Active Substance: ENALAPRIL
  3. FUROSEMIDE. [Concomitant]
     Active Substance: FUROSEMIDE

REACTIONS (2)
  - Hallucination [None]
  - Off label use [None]

NARRATIVE: CASE EVENT DATE: 20140816
